FAERS Safety Report 8249084-3 (Version None)
Quarter: 2012Q2

REPORT INFORMATION
  Report Type: 
  Country: None (occurrence: None)
  Receive Date: 20120402
  Receipt Date: 20120329
  Transmission Date: 20120825
  Serious: No
  Sender: FDA-Public Use
  Company Number: US-PFIZER INC-2012069107

PATIENT
  Sex: Female
  Weight: 73.469 kg

DRUGS (1)
  1. LYRICA [Suspect]
     Indication: FIBROMYALGIA
     Dosage: 100 MG, 4X/DAY
     Route: 048

REACTIONS (5)
  - COUGH [None]
  - INFLUENZA [None]
  - SINUS DISORDER [None]
  - MALAISE [None]
  - FATIGUE [None]
